FAERS Safety Report 23293027 (Version 2)
Quarter: 2024Q1

REPORT INFORMATION
  Report Type: Spontaneous
  Country: US (occurrence: US)
  Receive Date: 20231213
  Receipt Date: 20240125
  Transmission Date: 20240409
  Serious: Yes (Hospitalization, Other)
  Sender: FDA-Public Use
  Company Number: US-PFIZER INC-202300435263

PATIENT
  Age: 93 Year
  Sex: Male
  Weight: 62.358 kg

DRUGS (14)
  1. VYNDAMAX [Suspect]
     Active Substance: TAFAMIDIS
     Indication: Cardiac disorder
     Dosage: 61 MG, 1X/DAY
     Route: 048
     Dates: start: 2021
  2. VYNDAMAX [Suspect]
     Active Substance: TAFAMIDIS
     Dosage: 61 MG, 1X/DAY
     Route: 048
     Dates: start: 2021
  3. MINERALS\VITAMINS [Concomitant]
     Active Substance: MINERALS\VITAMINS
     Dosage: 1 EACH MOMING
  4. BETIMOL [TIMOLOL] [Concomitant]
     Dosage: 1 DROP IN RIGHT EYE EACH MORNING
  5. ELIQUIS [Concomitant]
     Active Substance: APIXABAN
     Dosage: 1 TABLET 2 TIMES A DAY
  6. FLONASE [Concomitant]
     Active Substance: FLUTICASONE PROPIONATE
     Dosage: 1 SPRAY IN EACH NOSTRIL AS NEEDED
  7. HYDROCORTISONE [Concomitant]
     Active Substance: HYDROCORTISONE
     Dosage: 1 APPLICATION IN RECTUM AS NEEDED
  8. LEVOTHYROXINE [Concomitant]
     Active Substance: LEVOTHYROXINE\LEVOTHYROXINE SODIUM
     Dosage: 1 TABLET A DAY BUT 2 ON SUNDAY
  9. METOPROLOL SUCCINATE [Concomitant]
     Active Substance: METOPROLOL SUCCINATE
     Dosage: 2 TABLETS EACH MORNING AND 1 IN THE EVENING
  10. MONTELUKAST [Concomitant]
     Active Substance: MONTELUKAST SODIUM
     Dosage: 1 TABLET A DAY DINNER
  11. PROCTOSOL HC [Concomitant]
     Dosage: UNK, AS NEEDED
  12. SPIRONOLACTONE [Concomitant]
     Active Substance: SPIRONOLACTONE
     Dosage: 25 MG, 1X/DAY
  13. TORSEMIDE [Concomitant]
     Active Substance: TORSEMIDE
     Dosage: 2 IN THE AM
  14. ZYRTEC [Concomitant]
     Active Substance: CETIRIZINE HYDROCHLORIDE
     Dosage: 1 TABLET A DAY

REACTIONS (3)
  - Pneumonia [Recovered/Resolved]
  - Cardiac disorder [Unknown]
  - COVID-19 [Recovered/Resolved]

NARRATIVE: CASE EVENT DATE: 20231126
